FAERS Safety Report 24634534 (Version 2)
Quarter: 2024Q4

REPORT INFORMATION
  Report Type: Report from Study
  Country: CN (occurrence: CN)
  Receive Date: 20241119
  Receipt Date: 20241128
  Transmission Date: 20250114
  Serious: Yes (Hospitalization)
  Sender: SANOFI AVENTIS
  Company Number: CN-SA-2024SA304435

PATIENT
  Age: 45 Year
  Sex: Female

DRUGS (1)
  1. BELUMOSUDIL MESYLATE [Suspect]
     Active Substance: BELUMOSUDIL MESYLATE
     Dosage: 200 MG, QD
     Route: 048
     Dates: start: 20240615

REACTIONS (3)
  - Pulmonary function test decreased [Not Recovered/Not Resolved]
  - Transaminases increased [Unknown]
  - Myalgia [Not Recovered/Not Resolved]

NARRATIVE: CASE EVENT DATE: 20240101
